FAERS Safety Report 23427703 (Version 1)
Quarter: 2024Q1

REPORT INFORMATION
  Report Type: Spontaneous
  Country: RU (occurrence: RU)
  Receive Date: 20240122
  Receipt Date: 20240122
  Transmission Date: 20240410
  Serious: Yes (Other)
  Sender: FDA-Public Use
  Company Number: None

PATIENT
  Age: 11 Year
  Sex: Male
  Weight: 11 kg

DRUGS (2)
  1. ULTRAVIST [Suspect]
     Active Substance: IOPROMIDE
     Indication: X-ray with contrast
     Dosage: 15 ML, ONCE
     Route: 042
     Dates: start: 20230404, end: 20230404
  2. SEVOFLURANE [Suspect]
     Active Substance: SEVOFLURANE
     Indication: Light anaesthesia
     Dosage: 1-6, UP TO 0.8-2 UNITS
     Route: 055
     Dates: start: 20230404, end: 20230404

REACTIONS (1)
  - Body temperature increased [Recovering/Resolving]

NARRATIVE: CASE EVENT DATE: 20230404
